FAERS Safety Report 8967790 (Version 3)
Quarter: 2013Q2

REPORT INFORMATION
  Report Type: Spontaneous
  Country: JP (occurrence: None)
  Receive Date: 20121207
  Receipt Date: 20130501
  Transmission Date: 20140414
  Serious: Yes (Life-Threatening)
  Sender: FDA-Public Use
  Company Number: TCI2012A06872

PATIENT
  Age: 76 Year
  Sex: Female

DRUGS (11)
  1. ROZEREM [Suspect]
     Indication: INSOMNIA
     Route: 048
     Dates: start: 20111212, end: 20111220
  2. PREDONINE (PREDNISOLONE) [Concomitant]
  3. BAYASPIRIN(ACETYLSALICYLIC ACID) [Concomitant]
  4. MAINTATE (BISOPROLOL FUMARATE) [Concomitant]
  5. GLACTIV (SITAGLIPTIN PHOSPHATE MONOHYDRATE) [Concomitant]
  6. CELECOX (CELECOXIB) [Concomitant]
  7. FERROMIA (FERROUS SODIUM CITRATE) [Concomitant]
  8. GASTER D [Concomitant]
  9. MAGMITT (MAGNESIUM OXIDE) [Concomitant]
  10. DEPAS (ETIZOLAM) [Concomitant]
  11. HALCION (TRIAZOLAM) [Concomitant]

REACTIONS (3)
  - Urinary tract infection [None]
  - Sepsis [None]
  - Disseminated intravascular coagulation [None]
